FAERS Safety Report 10194698 (Version 1)
Quarter: 2014Q2

REPORT INFORMATION
  Report Type: Spontaneous
  Country: AR (occurrence: AR)
  Receive Date: 20140526
  Receipt Date: 20140526
  Transmission Date: 20141212
  Serious: Yes (Death, Hospitalization, Other)
  Sender: FDA-Public Use
  Company Number: AR-ORION CORPORATION ORION PHARMA-ENTC2014-0173

PATIENT
  Age: 86 Year
  Sex: Female

DRUGS (2)
  1. STALEVO [Suspect]
     Indication: PARKINSON^S DISEASE
     Dosage: STRENGTH: 100 MG
     Route: 048
  2. EXELON [Suspect]
     Indication: DEMENTIA ALZHEIMER^S TYPE
     Route: 062

REACTIONS (5)
  - Cardio-respiratory arrest [Fatal]
  - Eating disorder [Not Recovered/Not Resolved]
  - Eye disorder [Not Recovered/Not Resolved]
  - Fall [Not Recovered/Not Resolved]
  - Head injury [Not Recovered/Not Resolved]
